FAERS Safety Report 9192295 (Version 1)
Quarter: 2013Q1

REPORT INFORMATION
  Report Type: Spontaneous
  Country: US (occurrence: None)
  Receive Date: 20120703
  Receipt Date: 20120703
  Transmission Date: 20140127
  Serious: No
  Sender: FDA-Public Use
  Company Number: PHEH2012US011028

PATIENT
  Age: 53 Year
  Sex: Female
  Weight: 74.4 kg

DRUGS (11)
  1. GILENYA [Suspect]
     Indication: MULTIPLE SCLEROSIS
     Route: 048
     Dates: start: 20120525
  2. ALPRAZOLAM (ALPRAZOLAM) [Concomitant]
  3. PANTOPRAZOLE SODIUM (PANTOPRAZOLE SODIUM) [Concomitant]
  4. ZANAFLEX (TIZANIDINE HYDROCHLORIDE) [Concomitant]
  5. AMANTADINE (AMANTADINE) [Concomitant]
  6. BACLOFEN (BACLOFEN) [Concomitant]
  7. REQUIP (ROPINIROLE HYDROCHLORIDE) [Concomitant]
  8. NOTRIPTYLINE (NORTRIPTYLINE) [Concomitant]
  9. ZOCOR (SIMVASTATIN) [Concomitant]
  10. ESTRACE (ESTRADIOL) [Concomitant]
  11. TRIAMTERENE AND HYDROCHLOROTHIAZID (HYDROCHLOROTHIAZID, TRIAMTERENE) [Concomitant]

REACTIONS (5)
  - Tremor [None]
  - Malaise [None]
  - Abdominal discomfort [None]
  - Heart rate decreased [None]
  - Fatigue [None]
